FAERS Safety Report 25482201 (Version 1)
Quarter: 2025Q2

REPORT INFORMATION
  Report Type: Spontaneous
  Country: PT (occurrence: PT)
  Receive Date: 20250626
  Receipt Date: 20250626
  Transmission Date: 20250717
  Serious: Yes (Other)
  Sender: EXELIXIS
  Company Number: PT-IPSEN Group, Research and Development-2025-14440

PATIENT
  Age: 52 Year
  Sex: Male
  Weight: 108 kg

DRUGS (1)
  1. CABOMETYX [Suspect]
     Active Substance: CABOZANTINIB S-MALATE
     Indication: Renal cancer stage IV
     Dosage: 60 MG 1 CP/DIA
     Route: 048
     Dates: start: 20250207

REACTIONS (2)
  - Skin hypopigmentation [Not Recovered/Not Resolved]
  - Hair colour changes [Not Recovered/Not Resolved]

NARRATIVE: CASE EVENT DATE: 20250224
